FAERS Safety Report 18326181 (Version 1)
Quarter: 2020Q3

REPORT INFORMATION
  Report Type: Spontaneous
  Country: US (occurrence: US)
  Receive Date: 20200929
  Receipt Date: 20200929
  Transmission Date: 20201103
  Serious: Yes (Death, Hospitalization)
  Sender: FDA-Public Use
  Company Number: US-MYLANLABS-2020M1082489

PATIENT
  Age: 49 Year
  Sex: Male

DRUGS (1)
  1. SORAFENIB [Suspect]
     Active Substance: SORAFENIB
     Indication: HEPATOCELLULAR CARCINOMA
     Dosage: 200 MILLIGRAM, BID
     Route: 065

REACTIONS (6)
  - Tumour lysis syndrome [Fatal]
  - Acidosis [Unknown]
  - Generalised oedema [Unknown]
  - Cardio-respiratory arrest [Fatal]
  - Oliguria [Unknown]
  - Hypoxia [Unknown]
